FAERS Safety Report 9204389 (Version 1)
Quarter: 2013Q1

REPORT INFORMATION
  Report Type: Spontaneous
  Country: US (occurrence: None)
  Receive Date: 20120709
  Receipt Date: 20120709
  Transmission Date: 20140127
  Serious: Yes (Other)
  Sender: FDA-Public Use
  Company Number: PHEH2012US008687

PATIENT
  Sex: 0

DRUGS (2)
  1. GLEEVEC (IMATINIB) [Suspect]
  2. SUTENT [Suspect]

REACTIONS (1)
  - Metastases to liver [None]
